FAERS Safety Report 6779569-8 (Version None)
Quarter: 2010Q2

REPORT INFORMATION
  Report Type: 
  Country: None (occurrence: None)
  Receive Date: 20100618
  Receipt Date: 20100615
  Transmission Date: 20101027
  Serious: Yes (Death)
  Sender: FDA-Public Use
  Company Number: A0852455A

PATIENT
  Sex: Male
  Weight: 75 kg

DRUGS (3)
  1. COMBIVIR [Suspect]
     Indication: LENTIVIRUS TEST POSITIVE
     Route: 048
     Dates: start: 20000101
  2. AZT [Suspect]
     Indication: LENTIVIRUS TEST POSITIVE
     Route: 065
     Dates: start: 20000101
  3. UNSPECIFIED MEDICATIONS [Concomitant]

REACTIONS (35)
  - ANAEMIA [None]
  - APHAGIA [None]
  - BRADYCARDIA [None]
  - CONFUSIONAL STATE [None]
  - DEPRESSED LEVEL OF CONSCIOUSNESS [None]
  - DIFFUSE LARGE B-CELL LYMPHOMA [None]
  - DISEASE PROGRESSION [None]
  - DISSEMINATED INTRAVASCULAR COAGULATION [None]
  - DRUG ERUPTION [None]
  - FUNGAL INFECTION [None]
  - GASTRIC DISORDER [None]
  - GENERAL PHYSICAL HEALTH DETERIORATION [None]
  - HALLUCINATION [None]
  - HEPATITIS ACUTE [None]
  - HERPES ZOSTER [None]
  - HYPERKALAEMIA [None]
  - HYPOGLYCAEMIA [None]
  - HYPOTENSION [None]
  - HYPOTHERMIA [None]
  - LABORATORY TEST INTERFERENCE [None]
  - LACTIC ACIDOSIS [None]
  - MALIGNANT DYSPHAGIA [None]
  - METABOLIC ACIDOSIS [None]
  - MUSCLE ATROPHY [None]
  - NAUSEA [None]
  - NEPHROLITHIASIS [None]
  - NON-HODGKIN'S LYMPHOMA [None]
  - OESOPHAGITIS [None]
  - ORAL CANDIDIASIS [None]
  - OSTEONECROSIS [None]
  - PULSE ABSENT [None]
  - RENAL COLIC [None]
  - TUMOUR NECROSIS [None]
  - WEIGHT DECREASED [None]
  - WITHDRAWAL SYNDROME [None]
